FAERS Safety Report 9871800 (Version 2)
Quarter: 2014Q1

REPORT INFORMATION
  Report Type: Report from Study
  Country: EC (occurrence: EC)
  Receive Date: 20140205
  Receipt Date: 20140305
  Transmission Date: 20141002
  Serious: Yes (Other)
  Sender: FDA-Public Use
  Company Number: EC-US-EMD SERONO, INC.-7267074

PATIENT
  Age: 11 Year
  Sex: Female

DRUGS (1)
  1. SAIZEN [Suspect]
     Indication: GROWTH HORMONE DEFICIENCY
     Dosage: 1.33 (UNITS NOT SPECIFIED)
     Dates: start: 201310

REACTIONS (4)
  - Paralysis [Recovered/Resolved]
  - Viral infection [Unknown]
  - Headache [Not Recovered/Not Resolved]
  - Hypoaesthesia oral [Unknown]
